FAERS Safety Report 12184849 (Version 1)
Quarter: 2016Q1

REPORT INFORMATION
  Report Type: Spontaneous
  Country: US (occurrence: US)
  Receive Date: 20160316
  Receipt Date: 20160316
  Transmission Date: 20160526
  Serious: Yes (Hospitalization, Other)
  Sender: FDA-Public Use
  Company Number: US-WATSON-2016-05706

PATIENT
  Age: 9 Year
  Sex: Female

DRUGS (2)
  1. METHYLPHENIDATE HCL ER (WATSON LABORATORIES) [Suspect]
     Active Substance: METHYLPHENIDATE HYDROCHLORIDE
     Indication: ATTENTION DEFICIT/HYPERACTIVITY DISORDER
     Dosage: 1 DF, DAILY
     Route: 065
     Dates: start: 201212, end: 201302
  2. METHYLPHENIDATE HCL ER (WATSON LABORATORIES) [Suspect]
     Active Substance: METHYLPHENIDATE HYDROCHLORIDE
     Indication: ATTENTION DEFICIT/HYPERACTIVITY DISORDER
     Dosage: 1 DF, DAILY
     Route: 065

REACTIONS (6)
  - Nervous system disorder [Unknown]
  - Suicide attempt [Unknown]
  - Apallic syndrome [Unknown]
  - Anoxia [Unknown]
  - Self injurious behaviour [Unknown]
  - Motor dysfunction [Unknown]

NARRATIVE: CASE EVENT DATE: 201301
